FAERS Safety Report 9435398 (Version 2)
Quarter: 2013Q3

REPORT INFORMATION
  Report Type: Spontaneous
  Country: US (occurrence: US)
  Receive Date: 20130801
  Receipt Date: 20130925
  Transmission Date: 20140515
  Serious: Yes (Other)
  Sender: FDA-Public Use
  Company Number: US-GLAXOSMITHKLINE-A1035740A

PATIENT
  Age: 69 Year
  Sex: Female
  Weight: 58.2 kg

DRUGS (12)
  1. VOTRIENT [Suspect]
     Indication: SARCOMA
     Dosage: 800MG PER DAY
     Route: 048
  2. NEXIUM [Concomitant]
     Dosage: 20MG UNKNOWN
  3. SERTRALINE [Concomitant]
     Dosage: 50MG UNKNOWN
  4. DIOVAN HCT [Concomitant]
  5. VYTORIN [Concomitant]
  6. VITAMIN D [Concomitant]
  7. CALTRATE [Concomitant]
     Dosage: 600MG UNKNOWN
  8. FLUTICASONE [Concomitant]
  9. PERCOCET [Concomitant]
  10. VICODIN [Concomitant]
  11. ALBUTEROL [Concomitant]
     Dosage: 90MCG UNKNOWN
     Route: 055
  12. AVELOX [Concomitant]
     Dosage: 400MG UNKNOWN

REACTIONS (8)
  - Cognitive disorder [Unknown]
  - Sarcoma [Unknown]
  - Pneumonia [Unknown]
  - Lymphoedema [Unknown]
  - Amnesia [Unknown]
  - Pain in extremity [Recovered/Resolved]
  - Hyperkeratosis [Unknown]
  - Nodule [Unknown]
